FAERS Safety Report 4718956-6 (Version None)
Quarter: 2005Q3

REPORT INFORMATION
  Report Type: 
  Country: None (occurrence: None)
  Receive Date: 20050720
  Receipt Date: 20050707
  Transmission Date: 20060218
  Serious: Yes (Hospitalization)
  Sender: FDA-Public Use
  Company Number: 2005098788

PATIENT
  Age: 47 Year
  Sex: Female

DRUGS (1)
  1. LATANOPROST [Suspect]
     Indication: OPEN ANGLE GLAUCOMA
     Dosage: 50 ^MKG^ (1 IN 1 D), TOPICAL
     Route: 061
     Dates: start: 20050403

REACTIONS (1)
  - INTRAOCULAR PRESSURE INCREASED [None]
